FAERS Safety Report 5568829-4 (Version None)
Quarter: 2007Q4

REPORT INFORMATION
  Report Type: 
  Country: None (occurrence: None)
  Receive Date: 20071220
  Receipt Date: 20070130
  Transmission Date: 20080405
  Serious: No
  Sender: FDA-Public Use
  Company Number: A0637635A

PATIENT
  Sex: Male

DRUGS (3)
  1. AVODART [Suspect]
     Indication: BENIGN PROSTATIC HYPERPLASIA
     Dosage: .5MG PER DAY
     Route: 048
     Dates: start: 20061201
  2. PRILOSEC [Concomitant]
  3. POTASSIUM CITRATE [Concomitant]

REACTIONS (4)
  - BLOOD PRESSURE INCREASED [None]
  - CHEST PAIN [None]
  - HEART RATE INCREASED [None]
  - LOCAL SWELLING [None]
